FAERS Safety Report 21715319 (Version 2)
Quarter: 2022Q4

REPORT INFORMATION
  Report Type: Spontaneous
  Country: GR (occurrence: GR)
  Receive Date: 20221212
  Receipt Date: 20221214
  Transmission Date: 20230112
  Serious: Yes (Death, Other)
  Sender: FDA-Public Use
  Company Number: GR-BAYER-2022P026396

PATIENT
  Age: 66 Year
  Sex: Male

DRUGS (1)
  1. NEXAVAR [Suspect]
     Active Substance: SORAFENIB
     Indication: Hepatocellular carcinoma

REACTIONS (11)
  - Hepatocellular carcinoma [Fatal]
  - Hepatorenal syndrome [Fatal]
  - Hepatic failure [Fatal]
  - Hepatic encephalopathy [Fatal]
  - Palpable purpura [Fatal]
  - Purpura [None]
  - Hepatic lesion [None]
  - Gamma-glutamyltransferase increased [None]
  - Hepatomegaly [None]
  - Vasculitis necrotising [None]
  - Red blood cell sedimentation rate increased [None]
